FAERS Safety Report 5685091-2 (Version None)
Quarter: 2008Q1

REPORT INFORMATION
  Report Type: 
  Country: None (occurrence: None)
  Receive Date: 20080328
  Receipt Date: 20080318
  Transmission Date: 20080703
  Serious: Yes (Other)
  Sender: FDA-Public Use
  Company Number: US-PFIZER INC-2008012389

PATIENT
  Sex: Male
  Weight: 97.5 kg

DRUGS (3)
  1. CHANTIX [Suspect]
     Indication: SMOKING CESSATION THERAPY
  2. ZYPREXA [Concomitant]
     Dosage: DAILY DOSE:5MG
  3. CLONAZEPAM [Concomitant]
     Dosage: DAILY DOSE:.5MG

REACTIONS (2)
  - DEPRESSION [None]
  - FEELING COLD [None]
